FAERS Safety Report 12969352 (Version 1)
Quarter: 2016Q4

REPORT INFORMATION
  Report Type: Report from Study
  Country: AU (occurrence: AU)
  Receive Date: 20161123
  Receipt Date: 20161123
  Transmission Date: 20170207
  Serious: Yes (Other)
  Sender: FDA-Public Use
  Company Number: AU-REGENERON PHARMACEUTICALS, INC.-2016-20603

PATIENT

DRUGS (1)
  1. EYLEA [Suspect]
     Active Substance: AFLIBERCEPT
     Indication: NEOVASCULAR AGE-RELATED MACULAR DEGENERATION
     Dosage: 2 MG, Q4WK, LAST INJECTION ON 31-OCT-2016 RIGHT EYE
     Route: 031
     Dates: start: 20160527

REACTIONS (7)
  - Joint swelling [Recovering/Resolving]
  - Visual field defect [Unknown]
  - Reaction to preservatives [Unknown]
  - Chorioretinopathy [Unknown]
  - Fall [Recovering/Resolving]
  - Injection site erythema [Recovered/Resolved]
  - Visual impairment [Not Recovered/Not Resolved]

NARRATIVE: CASE EVENT DATE: 201608
